FAERS Safety Report 13654551 (Version 1)
Quarter: 2017Q2

REPORT INFORMATION
  Report Type: Spontaneous
  Country: IT (occurrence: IT)
  Receive Date: 20170615
  Receipt Date: 20170615
  Transmission Date: 20170830
  Serious: Yes (Other)
  Sender: FDA-Public Use
  Company Number: IT-JNJFOC-20170607742

PATIENT
  Sex: Female

DRUGS (3)
  1. METFORMIN [Concomitant]
     Active Substance: METFORMIN HYDROCHLORIDE
     Dosage: 1/2 TABLET IN THE MORNING, ONE AFTER LUNCH AND ONE AFTER DINNER
     Route: 048
  2. INVOKANA [Suspect]
     Active Substance: CANAGLIFLOZIN
     Indication: DIABETES MELLITUS
     Dosage: BEFORE LUNCH
     Route: 048
     Dates: start: 201702
  3. RAMIPRIL. [Concomitant]
     Active Substance: RAMIPRIL
     Dosage: TAKEN IN THE MORNING
     Route: 048

REACTIONS (5)
  - Paraesthesia [Unknown]
  - Anaemia [Unknown]
  - Weight decreased [Unknown]
  - Sensory loss [Unknown]
  - Peripheral coldness [Unknown]
